FAERS Safety Report 19646674 (Version 1)
Quarter: 2021Q3

REPORT INFORMATION
  Report Type: Spontaneous
  Country: US (occurrence: US)
  Receive Date: 20210802
  Receipt Date: 20210802
  Transmission Date: 20211014
  Serious: No
  Sender: FDA-Public Use
  Company Number: US-009507513-2107USA007662

PATIENT

DRUGS (2)
  1. JANUMET [Suspect]
     Active Substance: METFORMIN HYDROCHLORIDE\SITAGLIPTIN PHOSPHATE
     Dosage: 1 TABLET ONCE DAILY
     Route: 048
  2. JANUMET [Suspect]
     Active Substance: METFORMIN HYDROCHLORIDE\SITAGLIPTIN PHOSPHATE
     Dosage: 1 TABLET BID WITH MEALS
     Route: 048

REACTIONS (2)
  - Incorrect dose administered [Unknown]
  - No adverse event [Unknown]
